FAERS Safety Report 9550841 (Version 1)
Quarter: 2013Q3

REPORT INFORMATION
  Report Type: Spontaneous
  Country: US (occurrence: US)
  Receive Date: 20130924
  Receipt Date: 20130924
  Transmission Date: 20140515
  Serious: No
  Sender: FDA-Public Use
  Company Number: US-SANOFI-AVENTIS-2013SA058458

PATIENT
  Age: 59 Year
  Sex: Male

DRUGS (15)
  1. AUBAGIO [Suspect]
     Indication: MULTIPLE SCLEROSIS
     Route: 048
     Dates: start: 20130524
  2. AMLODIPINE BESILATE [Concomitant]
  3. BUPROPION [Concomitant]
  4. CALCIUM CARBONATE [Concomitant]
     Dosage: 500
  5. ECOTRIN [Concomitant]
  6. FISH OIL [Concomitant]
     Dosage: 340-100
  7. FOLIC ACID [Concomitant]
  8. LEVOTHROID [Concomitant]
  9. ALL OTHER THERAPEUTIC PRODUCTS [Concomitant]
  10. MAGNESIUM [Concomitant]
  11. MULTIVITAMINS [Concomitant]
  12. PRILOSEC [Concomitant]
  13. VITAMIN B12 [Concomitant]
  14. VITAMIN D [Concomitant]
  15. VITAMIN E [Concomitant]

REACTIONS (5)
  - Fluid retention [Unknown]
  - Condition aggravated [Not Recovered/Not Resolved]
  - Micturition urgency [Unknown]
  - Pollakiuria [Unknown]
  - Oedema peripheral [Recovered/Resolved]
